FAERS Safety Report 5596300-2 (Version None)
Quarter: 2008Q1

REPORT INFORMATION
  Report Type: 
  Country: None (occurrence: None)
  Receive Date: 20080118
  Receipt Date: 20080110
  Transmission Date: 20080703
  Serious: Yes (Other)
  Sender: FDA-Public Use
  Company Number: US-GILEAD-2008-0014951

PATIENT
  Sex: Female
  Weight: 94.432 kg

DRUGS (10)
  1. LETAIRIS [Suspect]
     Indication: PULMONARY HYPERTENSION
     Route: 048
     Dates: start: 20071101
  2. QVAR 40 [Concomitant]
     Indication: ASTHMA
     Route: 055
  3. ALBUTEROL [Concomitant]
     Indication: CHRONIC OBSTRUCTIVE PULMONARY DISEASE
  4. GABAPENTIN [Concomitant]
     Indication: FIBROMYALGIA
     Route: 048
  5. FLUOXETINE [Concomitant]
     Indication: DEPRESSION
     Route: 048
  6. REVATIO [Concomitant]
     Indication: PULMONARY HYPERTENSION
     Route: 048
  7. WARFARIN SODIUM [Concomitant]
     Indication: ANTICOAGULANT THERAPY
     Route: 048
  8. CELEBREX [Concomitant]
     Indication: ARTHRALGIA
     Route: 048
  9. LASIX [Concomitant]
     Indication: PULMONARY HYPERTENSION
     Route: 048
  10. FAMOTIDINE [Concomitant]
     Indication: PEPTIC ULCER
     Route: 048

REACTIONS (2)
  - COUGH [None]
  - EPISTAXIS [None]
